FAERS Safety Report 10756079 (Version 3)
Quarter: 2020Q1

REPORT INFORMATION
  Report Type: Spontaneous
  Country: CA (occurrence: CA)
  Receive Date: 20150202
  Receipt Date: 20200124
  Transmission Date: 20200409
  Serious: Yes (Disabling, Other)
  Sender: FDA-Public Use
  Company Number: CA-009507513-1501CAN011767

PATIENT
  Age: 54 Year
  Sex: Female
  Weight: 62 kg

DRUGS (5)
  1. CYANOCOBALAMIN. [Concomitant]
     Active Substance: CYANOCOBALAMIN
     Indication: COELIAC DISEASE
     Dosage: 1 MILLILITER, QM (1 EVERY 1 MONTHS)
     Route: 030
  2. FOSAMAX [Suspect]
     Active Substance: ALENDRONATE SODIUM
     Indication: OSTEOPOROSIS
     Dosage: 70 MG, 1 TABLET, QW(1 EVERY 1 WEEKS)
     Route: 048
     Dates: start: 20091220, end: 20130826
  3. ALENDRONATE SODIUM (+) CHOLECALCIFEROL [Suspect]
     Active Substance: ALENDRONATE SODIUM\CHOLECALCIFEROL
     Indication: OSTEOPOROSIS
     Dosage: 1 DOSAGE FORM, QW(1 EVERY 1 WEEKS)
     Route: 048
  4. CAL (CALCIUM CARBONATE) [Concomitant]
     Indication: MENOPAUSE
     Dosage: 500 MG, QD (1 EVERY 1 DAYS)
     Route: 065
  5. D TABS [Concomitant]
     Active Substance: CHOLECALCIFEROL
     Indication: MENOPAUSE
     Dosage: 10000 IU, QW(1 EVERY 1 WEEKS)
     Route: 048

REACTIONS (2)
  - Fall [Not Recovered/Not Resolved]
  - Atypical femur fracture [Not Recovered/Not Resolved]

NARRATIVE: CASE EVENT DATE: 20130601
